FAERS Safety Report 17955137 (Version 1)
Quarter: 2020Q2

REPORT INFORMATION
  Report Type: Spontaneous
  Country: ES (occurrence: ES)
  Receive Date: 20200629
  Receipt Date: 20200629
  Transmission Date: 20200714
  Serious: Yes (Death, Hospitalization, Other)
  Sender: FDA-Public Use
  Company Number: ES-ROCHE-2621971

PATIENT
  Age: 66 Year
  Sex: Male

DRUGS (5)
  1. TOCILIZUMAB. [Suspect]
     Active Substance: TOCILIZUMAB
     Indication: COVID-19 PNEUMONIA
  2. ENOXAPARINA [Suspect]
     Active Substance: ENOXAPARIN
     Indication: PRODUCT USED FOR UNKNOWN INDICATION
     Route: 065
     Dates: start: 20200411, end: 20200422
  3. ENOXAPARINA [Suspect]
     Active Substance: ENOXAPARIN
     Route: 065
     Dates: start: 20200403, end: 20200410
  4. ENOXAPARINA [Suspect]
     Active Substance: ENOXAPARIN
     Route: 065
     Dates: start: 20200401, end: 20200402
  5. TOCILIZUMAB. [Suspect]
     Active Substance: TOCILIZUMAB
     Indication: COVID-19
     Route: 042
     Dates: start: 20200401, end: 20200401

REACTIONS (4)
  - Wound haemorrhage [Recovering/Resolving]
  - Hypofibrinogenaemia [Recovered/Resolved]
  - Off label use [Unknown]
  - Intentional product use issue [Unknown]

NARRATIVE: CASE EVENT DATE: 20200404
